FAERS Safety Report 5860635-6 (Version None)
Quarter: 2008Q3

REPORT INFORMATION
  Report Type: 
  Country: None (occurrence: None)
  Receive Date: 20080827
  Receipt Date: 20071008
  Transmission Date: 20090109
  Serious: No
  Sender: FDA-Public Use
  Company Number: US-ABBOTT-07P-163-0419880-00

PATIENT
  Sex: Male
  Weight: 73.548 kg

DRUGS (2)
  1. COATED PDS [Suspect]
     Indication: HIGH DENSITY LIPOPROTEIN DECREASED
     Route: 048
     Dates: start: 20070701
  2. COATED PDS [Suspect]
     Route: 048
     Dates: start: 20040101, end: 20070701

REACTIONS (2)
  - FLUSHING [None]
  - PRURITUS [None]
